FAERS Safety Report 24601623 (Version 1)
Quarter: 2024Q4

REPORT INFORMATION
  Report Type: Report from Study
  Country: TR (occurrence: TR)
  Receive Date: 20241111
  Receipt Date: 20241111
  Transmission Date: 20250114
  Serious: Yes (Congenital Anomaly, Other)
  Sender: ESKAYEF PHARMACEUTICALS LIMITED
  Company Number: TR-SKF-000147

PATIENT

DRUGS (1)
  1. PREGABALIN [Suspect]
     Active Substance: PREGABALIN
     Indication: Foetal exposure during pregnancy
     Route: 064

REACTIONS (3)
  - Retinopathy [Unknown]
  - Thyroid agenesis [Unknown]
  - Foetal exposure during pregnancy [Unknown]
